FAERS Safety Report 8115326-8 (Version None)
Quarter: 2012Q1

REPORT INFORMATION
  Report Type: 
  Country: None (occurrence: None)
  Receive Date: 20120206
  Receipt Date: 20120206
  Transmission Date: 20120608
  Serious: Yes (Other)
  Sender: FDA-Public Use
  Company Number: None

PATIENT
  Age: 48 Year
  Sex: Male
  Weight: 61.236 kg

DRUGS (1)
  1. BEVACIZUMAB [Suspect]
     Indication: ANORECTAL DISORDER
     Dosage: 305 MG -5 MG/KG-
     Route: 041
     Dates: start: 20071204, end: 20080228

REACTIONS (1)
  - CARDIOVASCULAR DISORDER [None]
